FAERS Safety Report 17507666 (Version 1)
Quarter: 2020Q1

REPORT INFORMATION
  Report Type: Spontaneous
  Country: FR (occurrence: FR)
  Receive Date: 20200306
  Receipt Date: 20200306
  Transmission Date: 20200409
  Serious: Yes (Life-Threatening, Hospitalization, Disabling, Other)
  Sender: FDA-Public Use
  Company Number: FR-TEVA-2020-FR-1194954

PATIENT
  Age: 37 Year
  Sex: Female

DRUGS (22)
  1. LACTOBACILLUS  ACIDOPHILUS [Suspect]
     Active Substance: LACTOBACILLUS ACIDOPHILUS
     Route: 065
     Dates: start: 20180403
  2. ZINC. [Suspect]
     Active Substance: ZINC
     Route: 065
     Dates: start: 20180511
  3. PARACETAMOL [Suspect]
     Active Substance: ACETAMINOPHEN
     Route: 065
     Dates: start: 20180412
  4. PARACETAMOL [Suspect]
     Active Substance: ACETAMINOPHEN
     Route: 065
     Dates: start: 20180707
  5. TIXOCORTOL [Suspect]
     Active Substance: TIXOCORTOL PIVALATE
     Route: 065
     Dates: start: 20180511
  6. IBUPROFENE ZENTIVA 400 MG, COMPRIMA? PELLICULA? [Suspect]
     Active Substance: IBUPROFEN
     Route: 065
  7. ALVERINI CITRAS, SIMETICON [Suspect]
     Active Substance: ALVERINE CITRATE\DIMETHICONE
     Route: 065
     Dates: start: 20180320
  8. ALPRAZOLAM. [Suspect]
     Active Substance: ALPRAZOLAM
     Route: 065
     Dates: start: 20180320
  9. CODEINE [Suspect]
     Active Substance: CODEINE
     Route: 065
     Dates: start: 20180707
  10. NALTREXON [Suspect]
     Active Substance: NALTREXONE
     Route: 065
     Dates: start: 20180320
  11. METRONIDAZOL [Suspect]
     Active Substance: METRONIDAZOLE
     Route: 065
     Dates: start: 20180326
  12. CODEINE [Suspect]
     Active Substance: CODEINE
     Indication: COUGH
     Route: 065
     Dates: start: 20180630
  13. SULFAMETHOXAZOL, TRIMETHOPRIM [Suspect]
     Active Substance: SULFAMETHOXAZOLE\TRIMETHOPRIM
     Route: 065
     Dates: start: 20180328
  14. TRIMEBUTINE [Suspect]
     Active Substance: TRIMEBUTINE
     Route: 065
     Dates: start: 20180326
  15. OMEPRAZOL [Suspect]
     Active Substance: OMEPRAZOLE
     Route: 065
     Dates: start: 20180108
  16. SULBUTIAMINE [Suspect]
     Active Substance: SULBUTIAMINE
     Route: 065
     Dates: start: 20180326
  17. NICOTIN [Suspect]
     Active Substance: NICOTINE
     Route: 065
     Dates: start: 20180108
  18. BECLOMETHASONE [Suspect]
     Active Substance: BECLOMETHASONE
     Route: 065
     Dates: start: 20180630
  19. METHOCARBAMOL. [Suspect]
     Active Substance: METHOCARBAMOL
     Route: 065
     Dates: start: 20180412
  20. DEXTROMETHORPHANE [Suspect]
     Active Substance: DEXTROMETHORPHAN
     Route: 065
     Dates: start: 20180630
  21. ERYTHROMYCINE [Suspect]
     Active Substance: ERYTHROMYCIN
     Route: 065
     Dates: start: 20180511
  22. TIXOCORTOL [Suspect]
     Active Substance: TIXOCORTOL PIVALATE
     Route: 065
     Dates: start: 20180630

REACTIONS (5)
  - Pneumonia streptococcal [Recovered/Resolved]
  - Beta haemolytic streptococcal infection [Recovered/Resolved]
  - Septic shock [Recovered/Resolved with Sequelae]
  - Necrosis ischaemic [Recovered/Resolved with Sequelae]
  - Loss of consciousness [Recovered/Resolved]
